FAERS Safety Report 6104444-1 (Version None)
Quarter: 2009Q1

REPORT INFORMATION
  Report Type: 
  Country: None (occurrence: None)
  Receive Date: 20090305
  Receipt Date: 20090303
  Transmission Date: 20090719
  Serious: Yes (Life-Threatening, Other)
  Sender: FDA-Public Use
  Company Number: PHEH2008US09811

PATIENT
  Sex: Female
  Weight: 47.619 kg

DRUGS (7)
  1. RECLAST [Suspect]
     Indication: OSTEOPOROSIS
     Dosage: 5 MG ONCE YEARLY
     Route: 042
     Dates: start: 20080813
  2. LEVOXYL [Concomitant]
  3. PLAVIX [Concomitant]
  4. FUROSEMIDE [Concomitant]
  5. NIFEDIPINE [Concomitant]
  6. TRAMADOL HCL [Concomitant]
  7. OMEPRAZOLE [Concomitant]

REACTIONS (9)
  - DRY EYE [None]
  - EYE INFECTION [None]
  - EYE INFLAMMATION [None]
  - EYE PAIN [None]
  - EYE PRURITUS [None]
  - EYE SWELLING [None]
  - EYELID EXFOLIATION [None]
  - SUICIDAL IDEATION [None]
  - VISION BLURRED [None]
